FAERS Safety Report 8935224 (Version 1)
Quarter: 2012Q4

REPORT INFORMATION
  Report Type: 
  Country: FR (occurrence: FR)
  Receive Date: 20121129
  Receipt Date: 20121129
  Transmission Date: 20130627
  Serious: Yes (Death, Other)
  Sender: FDA-Public Use
  Company Number: PHHY2012FR108789

PATIENT
  Age: 54 Year
  Sex: Male

DRUGS (4)
  1. BROMOCRIPTINE [Suspect]
     Dosage: 2.5 mg, daily (five times)
  2. QUINAGOLIDE [Concomitant]
     Dosage: 300 ug, daily
  3. TEMOZOLOMIDE [Concomitant]
     Dosage: 200 mg/m2, (5 days a month for 5 months)
  4. CARBOPLATIN [Concomitant]

REACTIONS (2)
  - Metastatic neoplasm [Fatal]
  - Blood prolactin increased [Unknown]
